FAERS Safety Report 4685072-1 (Version None)
Quarter: 2005Q2

REPORT INFORMATION
  Report Type: 
  Country: None (occurrence: None)
  Receive Date: 20050603
  Receipt Date: 20050524
  Transmission Date: 20051028
  Serious: Yes (Hospitalization, Other)
  Sender: FDA-Public Use
  Company Number: HQWYE051305AUG04

PATIENT
  Age: 67 Year
  Sex: Male

DRUGS (7)
  1. VENLAFAXINE HCL [Suspect]
     Indication: DEPRESSION
     Dosage: 37.5 MG 1X PER 1 DAY, ORAL; 75 MG 1X PER 1 DAY; 37.5 MG 1X PER 1 DAY
     Route: 048
     Dates: start: 20040706, end: 20040712
  2. VENLAFAXINE HCL [Suspect]
     Indication: DEPRESSION
     Dosage: 37.5 MG 1X PER 1 DAY, ORAL; 75 MG 1X PER 1 DAY; 37.5 MG 1X PER 1 DAY
     Route: 048
     Dates: start: 20040713, end: 20040719
  3. VENLAFAXINE HCL [Suspect]
     Indication: DEPRESSION
     Dosage: 37.5 MG 1X PER 1 DAY, ORAL; 75 MG 1X PER 1 DAY; 37.5 MG 1X PER 1 DAY
     Route: 048
     Dates: start: 20040720, end: 20040726
  4. PREDNISOLONE [Concomitant]
  5. LOXONIN (LOXOPROFEN SODIUM) [Concomitant]
  6. SILECE (FLUNITRAZEPAM) [Concomitant]
  7. ESTAZOLAM [Concomitant]

REACTIONS (6)
  - AGGRESSION [None]
  - CONDITION AGGRAVATED [None]
  - DEPRESSION [None]
  - DRUG INTERACTION [None]
  - EXCITABILITY [None]
  - INSOMNIA [None]
